FAERS Safety Report 23966966 (Version 1)
Quarter: 2024Q2

REPORT INFORMATION
  Report Type: Spontaneous
  Country: GB (occurrence: GB)
  Receive Date: 20240612
  Receipt Date: 20240612
  Transmission Date: 20240715
  Serious: Yes (Other)
  Sender: FDA-Public Use
  Company Number: GB-MHRA-TPP14882821C5839400YC1717598077149

PATIENT
  Age: 64 Year
  Sex: Male
  Weight: 70 kg

DRUGS (7)
  1. BACLOFEN [Suspect]
     Active Substance: BACLOFEN
     Indication: Ill-defined disorder
     Route: 065
     Dates: start: 20240605
  2. ATORVASTATIN [Concomitant]
     Active Substance: ATORVASTATIN
     Indication: Ill-defined disorder
     Dosage: TAKE ONE DAILY
     Route: 065
     Dates: start: 20230803
  3. ISOSORBIDE MONONITRATE [Concomitant]
     Active Substance: ISOSORBIDE MONONITRATE
     Indication: Ill-defined disorder
     Dosage: TAKE ONE TWICE DAILY
     Route: 065
     Dates: start: 20230803
  4. ASPIRIN [Concomitant]
     Active Substance: ASPIRIN
     Indication: Ill-defined disorder
     Dosage: TAKE ONE DAILY - PLEASE SUPPLY IN BLACK TUB NOT...
     Route: 065
     Dates: start: 20230803
  5. LISINOPRIL [Concomitant]
     Active Substance: LISINOPRIL
     Indication: Ill-defined disorder
     Dosage: BD
     Route: 065
     Dates: start: 20230803
  6. PREGABALIN [Concomitant]
     Active Substance: PREGABALIN
     Indication: Ill-defined disorder
     Dosage: TWO TABLETS IN THE MORNING ONE AT 2PM AND 2  IN...
     Route: 065
     Dates: start: 20230803
  7. ZOPICLONE [Concomitant]
     Active Substance: ZOPICLONE
     Indication: Ill-defined disorder
     Dosage: TAKE ONE AT NIGHT WHEN REQUIRED FOR SLEEP
     Dates: start: 20240521

REACTIONS (1)
  - Paralysis [Recovered/Resolved]

NARRATIVE: CASE EVENT DATE: 20240605
